FAERS Safety Report 8925114 (Version 1)
Quarter: 2012Q4

REPORT INFORMATION
  Report Type: Spontaneous
  Country: US (occurrence: None)
  Receive Date: 20121126
  Receipt Date: 20121126
  Transmission Date: 20130627
  Serious: Yes (Disabling)
  Sender: FDA-Public Use
  Company Number: None

PATIENT
  Age: 34 Year
  Sex: Male
  Weight: 86.18 kg

DRUGS (1)
  1. CIPROFLOXACIN [Suspect]
     Indication: URINARY TRACT INFECTION
     Dosage: 1000mg 1 per day po
     Route: 048
     Dates: start: 20120110, end: 20120111

REACTIONS (10)
  - Neuropathy peripheral [None]
  - Anxiety [None]
  - Depression [None]
  - Suicidal ideation [None]
  - Tendonitis [None]
  - Joint crepitation [None]
  - Tendon pain [None]
  - Arthralgia [None]
  - Thought blocking [None]
  - Aphasia [None]
